FAERS Safety Report 14726321 (Version 1)
Quarter: 2018Q2

REPORT INFORMATION
  Report Type: Spontaneous
  Country: PL (occurrence: PL)
  Receive Date: 20180406
  Receipt Date: 20180406
  Transmission Date: 20180711
  Serious: Yes (Other)
  Sender: FDA-Public Use
  Company Number: PL-ACCORD-065303

PATIENT
  Age: 60 Year
  Sex: Female

DRUGS (7)
  1. DEXAVEN [Concomitant]
     Active Substance: DEXAMETHASONE
     Indication: PROPHYLAXIS
     Route: 042
     Dates: start: 20170717
  2. ONDANSETRON [Concomitant]
     Active Substance: ONDANSETRON
     Indication: PROPHYLAXIS
     Dosage: 4 MG, STRENGTH: 4MG/2ML - PACKAGE-5 AM P.2ML
     Route: 042
     Dates: start: 20170807
  3. PEMBROLIZUMAB. [Suspect]
     Active Substance: PEMBROLIZUMAB
     Indication: TRIPLE NEGATIVE BREAST CANCER
     Dosage: 200 MG,EVERY 4 WEEKS, 5TH CYCLE FROM 23-OCT-2017, 4TH CYCLE (25-SEP-2017), 6TH CYCLE (20-NOV-2017).
     Route: 042
  4. CARBOMEDAC [Concomitant]
     Active Substance: CARBOPLATIN
     Indication: TRIPLE NEGATIVE BREAST CANCER
     Dosage: 255 MG, STRENGTH ALSO REPORTED AS : AUC 2-255MG; 1 PHIAL
     Route: 042
     Dates: start: 20170807
  5. FAYTON [Concomitant]
     Indication: PROPHYLAXIS
     Dosage: 4 MG, STRENGTH: 4MG/5ML; 1 PHIAL
     Route: 042
     Dates: start: 20170717
  6. GEMCITABINE/GEMCITABINE HYDROCHLORIDE [Suspect]
     Active Substance: GEMCITABINE\GEMCITABINE HYDROCHLORIDE
     Indication: TRIPLE NEGATIVE BREAST CANCER
     Dosage: CONCENTRATE: 100MG/25ML; 1 PHIAL
     Route: 042
  7. MAGNESIUM SULFATE. [Concomitant]
     Active Substance: MAGNESIUM SULFATE
     Indication: PROPHYLAXIS
     Dosage: 1 AMPULE
     Dates: start: 20170228

REACTIONS (8)
  - Diarrhoea [Not Recovered/Not Resolved]
  - Inappropriate schedule of drug administration [Unknown]
  - Skin discolouration [Recovering/Resolving]
  - Metastases to bone [Unknown]
  - Rash generalised [Recovered/Resolved]
  - Pyrexia [Recovered/Resolved]
  - Rash [Recovered/Resolved]
  - Neutrophil count decreased [Unknown]

NARRATIVE: CASE EVENT DATE: 2017
